FAERS Safety Report 9515874 (Version 1)
Quarter: 2013Q1

REPORT INFORMATION
  Report Type: Spontaneous
  Country: US (occurrence: None)
  Receive Date: 20130305
  Receipt Date: 20130305
  Transmission Date: 20140127
  Serious: Yes (Hospitalization, Other)
  Sender: FDA-Public Use
  Company Number: 163-21880-12102784

PATIENT
  Age: 69 Year
  Sex: Female

DRUGS (12)
  1. REVLIMID [Suspect]
     Indication: MYELODYSPLASTIC SYNDROME
     Route: 048
     Dates: start: 20120821
  2. ASA (ACETYLSALICYLIC ACID) [Concomitant]
  3. CLOPIDOGREL (CLOPIDOGREL) [Concomitant]
  4. METOPROLOL (METOPROLOL) [Concomitant]
  5. ATORVASTATIN (ATORVASTATIN) [Concomitant]
  6. LETROZOLE (LETROZOLE) [Concomitant]
  7. TEMAZEPAM (TEMAZEPAM) [Concomitant]
  8. ACETAMINOPHEN\HYDROCODONE BITARTRATE [Concomitant]
  9. STEROIDS (STEROID ANTIBACTERIALS) [Concomitant]
  10. BENADRYL (CLONALIN) [Concomitant]
  11. TYLENOL (PARACETAMOL) [Concomitant]
  12. TRANSFUSION (BLOOD AND RELATED PRODUCTS) [Concomitant]

REACTIONS (4)
  - Pancytopenia [None]
  - Pyrexia [None]
  - Neutropenia [None]
  - Arthralgia [None]
